FAERS Safety Report 6875329-8 (Version None)
Quarter: 2010Q3

REPORT INFORMATION
  Report Type: 
  Country: None (occurrence: None)
  Receive Date: 20100727
  Receipt Date: 20070712
  Transmission Date: 20110219
  Serious: Yes (Death, Hospitalization, Other)
  Sender: FDA-Public Use
  Company Number: US-PFIZER INC-2006151213

PATIENT
  Sex: Male
  Weight: 119.8 kg

DRUGS (3)
  1. CELEBREX [Suspect]
     Indication: PAIN
     Dates: start: 19990501, end: 20041118
  2. VIOXX [Suspect]
     Indication: ARTHRITIS
     Dosage: FREQUENCY: 1-2 TIMES
     Dates: start: 19990501, end: 20040930
  3. VIOXX [Suspect]
     Indication: GOUT

REACTIONS (2)
  - CEREBROVASCULAR ACCIDENT [None]
  - MYOCARDIAL INFARCTION [None]
